FAERS Safety Report 5708449-1 (Version None)
Quarter: 2008Q2

REPORT INFORMATION
  Report Type: 
  Country: None (occurrence: None)
  Receive Date: 20080414
  Receipt Date: 20080326
  Transmission Date: 20081010
  Serious: Yes (Hospitalization)
  Sender: FDA-Public Use
  Company Number: GB-DEXPHARM-20080268

PATIENT
  Age: 71 Year
  Sex: Female

DRUGS (5)
  1. OMEPRAZOLE [Suspect]
     Indication: HYPERCHLORHYDRIA
     Dosage: {20 MILLIGRAM (S)} ORAL
     Route: 048
     Dates: end: 20080311
  2. ADCAL-D3 (CHOLECALCIFEROL, DESTAB CALCIUM CARBONATE) [Concomitant]
  3. CILEXANE (ENOXAPARIN) [Concomitant]
  4. CO-DYDRAMOL (DIHYDROCODINE TARTRATE, PARACETAMOL) [Concomitant]
  5. SENNA [Concomitant]

REACTIONS (1)
  - HYPONATRAEMIA [None]
